FAERS Safety Report 15517069 (Version 1)
Quarter: 2018Q4

REPORT INFORMATION
  Report Type: Spontaneous
  Country: US (occurrence: US)
  Receive Date: 20181011
  Receipt Date: 20181011
  Transmission Date: 20190205
  Serious: No
  Sender: FDA-Public Use
  Company Number: None

PATIENT
  Age: 61 Year
  Sex: Female

DRUGS (1)
  1. ESTRADIOL PATCH 0.05MG/124 HH [Suspect]
     Active Substance: ESTRADIOL
     Indication: MENOPAUSAL SYMPTOMS
     Route: 062
     Dates: start: 201612, end: 201701

REACTIONS (5)
  - Burning sensation [None]
  - Rash [None]
  - Pruritus [None]
  - Erythema [None]
  - Skin irritation [None]

NARRATIVE: CASE EVENT DATE: 20161220
